FAERS Safety Report 8963866 (Version 1)
Quarter: 2012Q4

REPORT INFORMATION
  Report Type: 
  Country: US (occurrence: US)
  Receive Date: 20121213
  Receipt Date: 20121213
  Transmission Date: 20130627
  Serious: Yes (Hospitalization)
  Sender: FDA-Public Use
  Company Number: US-JNJFOC-20121201356

PATIENT
  Sex: Female
  Weight: 81 kg

DRUGS (16)
  1. RIVAROXABAN [Suspect]
     Indication: THROMBOSIS PROPHYLAXIS
     Route: 048
     Dates: start: 20120720, end: 20120721
  2. RIVAROXABAN [Suspect]
     Indication: KNEE ARTHROPLASTY
     Route: 048
     Dates: start: 20120720, end: 20120721
  3. AMBIEN [Concomitant]
     Indication: SLEEP DISORDER
  4. ANTACID [Concomitant]
     Route: 048
  5. SIMETHICONE [Concomitant]
  6. CELEBREX [Concomitant]
     Route: 048
  7. CEPACOL [Concomitant]
     Indication: OROPHARYNGEAL PAIN
     Route: 048
  8. LYRICA [Concomitant]
     Route: 048
  9. MILK OF MAGNESIA [Concomitant]
     Indication: DYSPEPSIA
     Route: 048
  10. OXYCONTIN [Concomitant]
     Route: 048
  11. ROPIVACAINE [Concomitant]
     Indication: LOCAL ANAESTHESIA
     Route: 042
  12. SENOKOT [Concomitant]
     Route: 048
  13. BISACODYL [Concomitant]
     Indication: CONSTIPATION
     Route: 054
  14. BISACODYL [Concomitant]
     Route: 048
  15. CARVEDILOL [Concomitant]
     Dosage: hold for heart rate (HR) less than 50 and or systolic blood pressure (SBP) less than 90
     Route: 048
  16. BENADRYL [Concomitant]
     Indication: PRURITUS
     Route: 040

REACTIONS (1)
  - Pulmonary embolism [Unknown]
